FAERS Safety Report 23812479 (Version 1)
Quarter: 2024Q2

REPORT INFORMATION
  Report Type: Spontaneous
  Country: FR (occurrence: FR)
  Receive Date: 20240503
  Receipt Date: 20240503
  Transmission Date: 20240716
  Serious: Yes (Other)
  Sender: FDA-Public Use
  Company Number: FR-AFSSAPS-AVNT2024000283

PATIENT
  Age: 71 Year
  Sex: Male

DRUGS (6)
  1. DESLORATADINE [Suspect]
     Active Substance: DESLORATADINE
     Indication: Product used for unknown indication
     Dosage: 1 DOSAGE FORM, ONCE A DAY
     Route: 048
     Dates: start: 2020
  2. LORMETAZEPAM [Suspect]
     Active Substance: LORMETAZEPAM
     Indication: Product used for unknown indication
     Dosage: AU MOINS 1 MG
     Route: 048
     Dates: start: 2016
  3. PREGABALIN [Suspect]
     Active Substance: PREGABALIN
     Indication: Product used for unknown indication
     Dosage: AU MOINS 100 MG/J
     Route: 048
     Dates: start: 2020
  4. CODEINE [Suspect]
     Active Substance: CODEINE
     Indication: Product used for unknown indication
     Dosage: AU MOINS 6 CPS EFFERVESCENTS/J
     Route: 048
     Dates: start: 2014
  5. LORAZEPAM [Suspect]
     Active Substance: LORAZEPAM
     Indication: Product used for unknown indication
     Dosage: AU MOINS 3.75 MG
     Route: 048
     Dates: start: 2016
  6. ACETAMINOPHEN [Suspect]
     Active Substance: ACETAMINOPHEN
     Indication: Product used for unknown indication
     Dosage: AU MOINS 6 CPS EFFERVESCENTS/J
     Route: 048
     Dates: start: 2014

REACTIONS (1)
  - Drug use disorder [Not Recovered/Not Resolved]
